FAERS Safety Report 7067719-8 (Version None)
Quarter: 2010Q4

REPORT INFORMATION
  Report Type: 
  Country: None (occurrence: None)
  Receive Date: 20101028
  Receipt Date: 20101019
  Transmission Date: 20110411
  Serious: Yes (Other)
  Sender: FDA-Public Use
  Company Number: PHHY2010BG70429

PATIENT
  Age: 62 Year
  Sex: Female

DRUGS (8)
  1. RASILEZ [Suspect]
     Indication: HYPERTENSION
     Dosage: 300 MG OAD
     Route: 048
     Dates: start: 20101014
  2. TRITACE [Concomitant]
     Dosage: 5 MG, BID
  3. SOTAHEXAL [Concomitant]
     Dosage: 80 MG, BID
  4. NORVASC [Concomitant]
     Dosage: 5 MG OAD
  5. CHLOPHAZOLIN [Concomitant]
     Dosage: 3 X 1/2 TABLETS
  6. SINTROM [Concomitant]
  7. METFOGAMMA [Concomitant]
     Dosage: 3 X 850 MG
  8. LIPANTHYL SUPRA [Concomitant]
     Dosage: 160 MG OAD

REACTIONS (4)
  - DYSPNOEA [None]
  - OEDEMA [None]
  - PARAESTHESIA ORAL [None]
  - THROAT TIGHTNESS [None]
